FAERS Safety Report 12559142 (Version 2)
Quarter: 2016Q3

REPORT INFORMATION
  Report Type: Spontaneous
  Country: US (occurrence: US)
  Receive Date: 20160715
  Receipt Date: 20160826
  Transmission Date: 20161109
  Serious: Yes (Other)
  Sender: FDA-Public Use
  Company Number: US-TEVA-664616USA

PATIENT
  Age: 59 Year
  Sex: Female

DRUGS (5)
  1. CYMBALTA [Concomitant]
     Active Substance: DULOXETINE HYDROCHLORIDE
  2. XELJANZ [Concomitant]
     Active Substance: TOFACITINIB CITRATE
  3. DAYPRO [Concomitant]
     Active Substance: OXAPROZIN
  4. GABAPENTIN. [Concomitant]
     Active Substance: GABAPENTIN
  5. ZECUITY [Suspect]
     Active Substance: SUMATRIPTAN SUCCINATE
     Indication: HEADACHE
     Route: 062
     Dates: start: 201605, end: 201605

REACTIONS (15)
  - Application site discolouration [Recovered/Resolved]
  - Application site warmth [Recovered/Resolved]
  - Circumstance or information capable of leading to medication error [Unknown]
  - Product leakage [Unknown]
  - Product physical issue [Unknown]
  - Application site paraesthesia [Recovered/Resolved]
  - Wrong technique in product usage process [Unknown]
  - Drug effect incomplete [Unknown]
  - Application site burn [Recovered/Resolved]
  - Application site erythema [Recovered/Resolved]
  - Application site irritation [Recovered/Resolved]
  - Product adhesion issue [Unknown]
  - Product physical issue [Unknown]
  - Application site scar [Recovered/Resolved]
  - Application site pruritus [Recovered/Resolved]

NARRATIVE: CASE EVENT DATE: 201605
